FAERS Safety Report 10477813 (Version 2)
Quarter: 2014Q4

REPORT INFORMATION
  Report Type: Spontaneous
  Country: JP (occurrence: JP)
  Receive Date: 20140926
  Receipt Date: 20141006
  Transmission Date: 20150528
  Serious: Yes (Death, Hospitalization)
  Sender: FDA-Public Use
  Company Number: PHHY2014JP123515

PATIENT
  Age: 57 Year
  Sex: Female

DRUGS (4)
  1. CORTICOSTEROIDS [Suspect]
     Active Substance: CORTICOSTEROID NOS
     Indication: ORGANISING PNEUMONIA
  2. TACROLIMUS. [Suspect]
     Active Substance: TACROLIMUS
     Indication: ORGANISING PNEUMONIA
     Dosage: 1 MG
     Dates: start: 201107
  3. AZATHIOPRINE. [Suspect]
     Active Substance: AZATHIOPRINE
     Indication: ORGANISING PNEUMONIA
     Dosage: 75 MG, UNK
     Dates: start: 201011
  4. CYCLOPHOSPHAMIDE. [Suspect]
     Active Substance: CYCLOPHOSPHAMIDE
     Indication: ORGANISING PNEUMONIA

REACTIONS (21)
  - Lymphoma [Fatal]
  - Progressive multifocal leukoencephalopathy [Unknown]
  - Altered state of consciousness [Not Recovered/Not Resolved]
  - Gait disturbance [Not Recovered/Not Resolved]
  - Aphasia [Not Recovered/Not Resolved]
  - Apraxia [Not Recovered/Not Resolved]
  - CD8 lymphocytes decreased [Fatal]
  - Muscular weakness [Not Recovered/Not Resolved]
  - Tremor [Not Recovered/Not Resolved]
  - Paraesthesia [Not Recovered/Not Resolved]
  - Sensory disturbance [Not Recovered/Not Resolved]
  - Hemianopia [Not Recovered/Not Resolved]
  - Speech disorder [Not Recovered/Not Resolved]
  - CD4 lymphocytes decreased [Fatal]
  - Coordination abnormal [Not Recovered/Not Resolved]
  - Decorticate posture [Not Recovered/Not Resolved]
  - White blood cell count decreased [Fatal]
  - Anosognosia [Not Recovered/Not Resolved]
  - Neurologic neglect syndrome [Not Recovered/Not Resolved]
  - Motor dysfunction [Not Recovered/Not Resolved]
  - Drug ineffective [Unknown]

NARRATIVE: CASE EVENT DATE: 201110
